FAERS Safety Report 18565497 (Version 1)
Quarter: 2020Q4

REPORT INFORMATION
  Report Type: Spontaneous
  Country: US (occurrence: US)
  Receive Date: 20201201
  Receipt Date: 20201201
  Transmission Date: 20210114
  Serious: Yes (Other)
  Sender: FDA-Public Use
  Company Number: NVSC2020US319803

PATIENT
  Age: 49 Year
  Sex: Female

DRUGS (1)
  1. HYDROXYCHLOROQUINE SULFATE TABLETS USP [Suspect]
     Active Substance: HYDROXYCHLOROQUINE SULFATE
     Indication: SJOGREN^S SYNDROME
     Dosage: 6.8 MG/KG, QD
     Route: 065

REACTIONS (3)
  - Product use in unapproved indication [Unknown]
  - Acquired pigmented retinopathy [Unknown]
  - Maculopathy [Unknown]
